FAERS Safety Report 17164067 (Version 2)
Quarter: 2020Q1

REPORT INFORMATION
  Report Type: Spontaneous
  Country: CN (occurrence: CN)
  Receive Date: 20191217
  Receipt Date: 20200103
  Transmission Date: 20200409
  Serious: No
  Sender: FDA-Public Use
  Company Number: CN-ASTRAZENECA-2019SF82329

PATIENT
  Sex: Male
  Weight: 55 kg

DRUGS (4)
  1. LOTENSIN [Concomitant]
     Active Substance: BENAZEPRIL HYDROCHLORIDE
     Dosage: EVERY MORNING
  2. ASPIRIN. [Concomitant]
     Active Substance: ASPIRIN
     Dosage: EVERY MORNING
     Route: 048
  3. CRESTOR [Suspect]
     Active Substance: ROSUVASTATIN CALCIUM
     Indication: STENT PLACEMENT
     Route: 048
     Dates: start: 20180403
  4. BETALOC [Concomitant]
     Active Substance: METOPROLOL TARTRATE

REACTIONS (1)
  - Osteonecrosis [Not Recovered/Not Resolved]
